FAERS Safety Report 11455209 (Version 2)
Quarter: 2016Q2

REPORT INFORMATION
  Report Type: Spontaneous
  Country: US (occurrence: US)
  Receive Date: 20150903
  Receipt Date: 20160420
  Transmission Date: 20160815
  Serious: No
  Sender: FDA-Public Use
  Company Number: US-LUNDBECK-DKLU2002559

PATIENT
  Age: 71 Year
  Sex: Female
  Weight: 66 kg

DRUGS (1)
  1. NORTHERA [Suspect]
     Active Substance: DROXIDOPA
     Indication: PRODUCT USED FOR UNKNOWN INDICATION
     Dates: start: 20150801, end: 201508

REACTIONS (5)
  - Blood pressure increased [Recovered/Resolved]
  - Insomnia [Unknown]
  - Hypertension [Unknown]
  - Headache [Unknown]
  - Heart rate increased [Unknown]

NARRATIVE: CASE EVENT DATE: 20150801
